FAERS Safety Report 9340786 (Version 1)
Quarter: 2013Q2

REPORT INFORMATION
  Report Type: Spontaneous
  Country: DE (occurrence: DE)
  Receive Date: 20130610
  Receipt Date: 20130610
  Transmission Date: 20140414
  Serious: Yes (Hospitalization)
  Sender: FDA-Public Use
  Company Number: DE-BAYER-2013-066226

PATIENT
  Age: 46 Year
  Sex: Female

DRUGS (1)
  1. ACETYLSALICYLIC ACID [Suspect]
     Indication: HEADACHE
     Dosage: 1000 MG, QD

REACTIONS (3)
  - Renal papillary necrosis [Recovering/Resolving]
  - Microcytic anaemia [Unknown]
  - Haematuria [Recovered/Resolved]
